FAERS Safety Report 23418112 (Version 1)
Quarter: 2024Q1

REPORT INFORMATION
  Report Type: Spontaneous
  Country: US (occurrence: US)
  Receive Date: 20240118
  Receipt Date: 20240118
  Transmission Date: 20240410
  Serious: Yes (Death, Hospitalization, Other)
  Sender: FDA-Public Use
  Company Number: US-SA-2024SA018424

PATIENT
  Age: 43 Year
  Sex: Female

DRUGS (1)
  1. SEVELAMER CARBONATE [Suspect]
     Active Substance: SEVELAMER CARBONATE
     Indication: Hyperphosphataemia
     Dosage: UNK, NASOGASTRIC ROUTE
     Dates: start: 20221013

REACTIONS (5)
  - Pulmonary alveolar haemorrhage [Fatal]
  - Acute lung injury [Fatal]
  - Crystal deposit intestine [Fatal]
  - Gastrointestinal haemorrhage [Fatal]
  - Abdominal pain [Fatal]

NARRATIVE: CASE EVENT DATE: 20220101
